FAERS Safety Report 7389059-X (Version None)
Quarter: 2011Q2

REPORT INFORMATION
  Report Type: 
  Country: None (occurrence: None)
  Receive Date: 20110401
  Receipt Date: 20110330
  Transmission Date: 20111010
  Serious: Yes (Other)
  Sender: FDA-Public Use
  Company Number: US-PFIZER INC-2006067502

PATIENT
  Sex: Female

DRUGS (6)
  1. PREMARIN [Suspect]
     Indication: HORMONE REPLACEMENT THERAPY
     Dosage: UNK
     Route: 048
     Dates: start: 19990101, end: 20021001
  2. AROMASIN [Concomitant]
     Indication: HORMONE LEVEL ABNORMAL
     Dosage: UNK
     Dates: start: 20060701
  3. LIPITOR [Concomitant]
     Indication: BLOOD CHOLESTEROL INCREASED
     Dosage: UNK
     Dates: start: 19920101
  4. PROVERA [Suspect]
     Indication: HORMONE REPLACEMENT THERAPY
     Dosage: UNK
     Route: 048
     Dates: start: 19990801
  5. MEDROXYPROGESTERONE ACETATE [Suspect]
     Indication: HORMONE REPLACEMENT THERAPY
     Dosage: UNK
     Route: 048
     Dates: start: 19980801, end: 20020101
  6. PREMPRO [Suspect]
     Indication: HORMONE REPLACEMENT THERAPY
     Dosage: UNK
     Route: 048
     Dates: start: 19970801

REACTIONS (5)
  - OESTROGEN RECEPTOR ASSAY POSITIVE [None]
  - OOPHORECTOMY BILATERAL [None]
  - GRAFT INFECTION [None]
  - BREAST CANCER [None]
  - PROGESTERONE RECEPTOR ASSAY POSITIVE [None]
